FAERS Safety Report 5150126-2 (Version None)
Quarter: 2006Q4

REPORT INFORMATION
  Report Type: 
  Country: None (occurrence: None)
  Receive Date: 20061114
  Receipt Date: 20061103
  Transmission Date: 20070319
  Serious: Yes (Hospitalization)
  Sender: FDA-Public Use
  Company Number: ES-ABBOTT-06P-144-0349352-00

PATIENT
  Age: 8 Year
  Sex: Female

DRUGS (2)
  1. DEPAKENE [Suspect]
     Indication: EPILEPSY
     Route: 048
  2. LAMOTRIGINE [Suspect]
     Indication: EPILEPSY
     Route: 048

REACTIONS (2)
  - GINGIVAL HYPERPLASIA [None]
  - GINGIVITIS [None]
